FAERS Safety Report 8432324-5 (Version None)
Quarter: 2012Q2

REPORT INFORMATION
  Report Type: 
  Country: None (occurrence: None)
  Receive Date: 20120613
  Receipt Date: 20120608
  Transmission Date: 20120825
  Serious: Yes (Hospitalization, Disabling, Other)
  Sender: FDA-Public Use
  Company Number: PHEH2011US07532

PATIENT
  Sex: Female
  Weight: 54 kg

DRUGS (1)
  1. EXJADE [Suspect]
     Indication: SICKLE CELL ANAEMIA
     Dosage: 1000 MG, QD
     Route: 048

REACTIONS (4)
  - CHEST PAIN [None]
  - THROMBOCYTOPENIA [None]
  - RENAL FAILURE [None]
  - SICKLE CELL ANAEMIA WITH CRISIS [None]
